FAERS Safety Report 19094946 (Version 1)
Quarter: 2021Q2

REPORT INFORMATION
  Report Type: Report from Study
  Country: None (occurrence: KR)
  Receive Date: 20210406
  Receipt Date: 20210406
  Transmission Date: 20210717
  Serious: Yes (Death, Hospitalization, Other)
  Sender: FDA-Public Use
  Company Number: KR-ABBVIE-21K-090-3844554-00

PATIENT
  Age: 64 Year
  Sex: Male
  Weight: 76 kg

DRUGS (119)
  1. VENCLEXTA [Suspect]
     Active Substance: VENETOCLAX
     Route: 048
     Dates: start: 20210312, end: 20210318
  2. DENOGAN [Concomitant]
     Active Substance: PROPACETAMOL HYDROCHLORIDE
     Dosage: 1VIAL
     Route: 042
     Dates: start: 20210318, end: 20210319
  3. WINUF PERI [Concomitant]
     Active Substance: AMINO ACIDS\DEXTROSE\ELECTROLYTES NOS\SOYBEAN OIL\VITAMINS
     Indication: NUTRITIONAL SUPPLEMENTATION
     Route: 042
     Dates: start: 20210221, end: 20210225
  4. LEGALON [Concomitant]
     Active Substance: DIETARY SUPPLEMENT\HERBALS\MILK THISTLE
     Indication: PROPHYLAXIS
     Dosage: 140
     Route: 048
     Dates: start: 20210218, end: 20210224
  5. RESOLOR [Concomitant]
     Active Substance: PRUCALOPRIDE SUCCINATE
     Indication: CONSTIPATION
     Route: 048
     Dates: start: 20190806, end: 20210302
  6. SYLCON [Concomitant]
     Active Substance: CALCIUM POLYCARBOPHIL
     Indication: GASTROINTESTINAL DISORDER PROPHYLAXIS
     Route: 048
     Dates: start: 20210225, end: 20210225
  7. LASIX [Concomitant]
     Active Substance: FUROSEMIDE
     Route: 042
     Dates: start: 20210303, end: 20210303
  8. LASIX [Concomitant]
     Active Substance: FUROSEMIDE
     Route: 042
     Dates: start: 20210315, end: 20210315
  9. LASIX [Concomitant]
     Active Substance: FUROSEMIDE
     Route: 042
     Dates: start: 20210324, end: 20210324
  10. MAXIPIME [Concomitant]
     Active Substance: CEFEPIME HYDROCHLORIDE
     Indication: LYMPHADENITIS
     Dosage: 8VIAL
     Route: 042
     Dates: start: 20210226, end: 20210226
  11. MACPERAN [Concomitant]
     Active Substance: METOCLOPRAMIDE HYDROCHLORIDE
     Route: 042
     Dates: start: 20210305, end: 20210308
  12. TRANEXAMIC ACID. [Concomitant]
     Active Substance: TRANEXAMIC ACID
     Indication: PANCYTOPENIA
     Dosage: 500MG PER 5ML
     Route: 042
     Dates: start: 20210305, end: 20210307
  13. FENTANYL CITRATE. [Concomitant]
     Active Substance: FENTANYL CITRATE
     Indication: LYMPHADENITIS
     Dosage: 500 MICROGRAM PER 10ML
     Route: 042
     Dates: start: 20210309, end: 20210326
  14. SEROQUEL [Concomitant]
     Active Substance: QUETIAPINE FUMARATE
     Indication: NEUROPATHY PERIPHERAL
     Route: 048
     Dates: start: 20210316, end: 20210316
  15. BEAROBAN [Concomitant]
     Indication: SKIN DISORDER PROPHYLAXIS
     Dosage: 1TUBE
     Route: 061
     Dates: start: 20210319, end: 20210319
  16. OXYNORM [Concomitant]
     Active Substance: OXYCODONE HYDROCHLORIDE
     Indication: ABDOMINAL PAIN
     Dosage: INJ 20MG PER 2ML
     Route: 042
     Dates: start: 20210222, end: 20210224
  17. OXYNORM [Concomitant]
     Active Substance: OXYCODONE HYDROCHLORIDE
     Dosage: INJ 20MG PER 2ML
     Route: 042
     Dates: start: 20210309, end: 20210309
  18. DENOGAN [Concomitant]
     Active Substance: PROPACETAMOL HYDROCHLORIDE
     Dosage: 1VIAL
     Route: 042
     Dates: start: 20210302, end: 20210304
  19. PENIRAMIN [Concomitant]
     Indication: PROPHYLAXIS
     Route: 042
     Dates: start: 20210223, end: 20210224
  20. URSA [Concomitant]
     Active Substance: URSODIOL
     Indication: PROPHYLAXIS
     Dosage: SC
     Route: 048
     Dates: start: 20210218, end: 20210224
  21. SYLCON [Concomitant]
     Active Substance: CALCIUM POLYCARBOPHIL
     Route: 048
     Dates: start: 20210225, end: 20210301
  22. LASIX [Concomitant]
     Active Substance: FUROSEMIDE
     Route: 042
     Dates: start: 20210305, end: 20210305
  23. TRIZELE [Concomitant]
     Active Substance: METRONIDAZOLE
     Dosage: 4BOTTLE
     Route: 042
     Dates: start: 20210316, end: 20210318
  24. PEPTAZOLE [Concomitant]
     Indication: GASTROINTESTINAL DISORDER PROPHYLAXIS
     Dosage: 1VIAL
     Route: 042
     Dates: start: 20210303, end: 20210306
  25. CANESTEN [Concomitant]
     Active Substance: CLOTRIMAZOLE
     Indication: SKIN ABRASION
     Dosage: POWDER 1 BOTTLE
     Route: 061
     Dates: start: 20210306, end: 20210306
  26. TROPHERINE [Concomitant]
     Dosage: 1BOTTLE
     Route: 047
     Dates: start: 20210323, end: 20210323
  27. TEICON [Concomitant]
     Indication: LYMPHADENITIS
     Dosage: 1VIAL
     Route: 042
     Dates: start: 20210318, end: 20210318
  28. OXYNORM [Concomitant]
     Active Substance: OXYCODONE HYDROCHLORIDE
     Dosage: INJ 20MG PER 2ML
     Route: 042
     Dates: start: 20210306, end: 20210307
  29. PENIRAMIN [Concomitant]
     Indication: PRURITUS
     Route: 042
     Dates: start: 20210311, end: 20210311
  30. ZYLORIC [Concomitant]
     Active Substance: ALLOPURINOL
     Indication: CHEMOTHERAPY SIDE EFFECT PROPHYLAXIS
     Route: 048
     Dates: start: 20210223, end: 20210224
  31. FORLAX [Concomitant]
     Active Substance: POLYETHYLENE GLYCOL 4000
     Indication: CONSTIPATION
     Route: 048
     Dates: start: 20210225, end: 20210225
  32. LASIX [Concomitant]
     Active Substance: FUROSEMIDE
     Route: 042
     Dates: start: 20210316, end: 20210316
  33. MAXIPIME [Concomitant]
     Active Substance: CEFEPIME HYDROCHLORIDE
     Dosage: 6VIAL
     Route: 042
     Dates: start: 20210227, end: 20210227
  34. NEUTROGIN [Concomitant]
     Active Substance: LENOGRASTIM
     Indication: PANCYTOPENIA
     Dosage: 1VIAL
     Route: 058
     Dates: start: 20210226, end: 20210325
  35. BENZPHETAMINE HYDROCHLORIDE. [Concomitant]
     Active Substance: BENZPHETAMINE HYDROCHLORIDE
     Route: 042
     Dates: start: 20210319, end: 20210321
  36. BENZPHETAMINE HYDROCHLORIDE. [Concomitant]
     Active Substance: BENZPHETAMINE HYDROCHLORIDE
     Route: 042
     Dates: start: 20210324, end: 20210325
  37. ALBUMIN [Concomitant]
     Active Substance: ALBUMIN HUMAN
     Indication: HYPOALBUMINAEMIA
     Dosage: ALBUMIN GREENCROSS INJECTION 20 PERCENT 100ML
     Route: 042
     Dates: start: 20210226, end: 20210226
  38. PEPTAZOLE [Concomitant]
     Dosage: 1VIAL
     Route: 042
     Dates: start: 20210311, end: 20210311
  39. RAMSET [Concomitant]
     Indication: PROPHYLAXIS OF NAUSEA AND VOMITING
     Route: 042
     Dates: start: 20210309, end: 20210326
  40. VENCLEXTA [Suspect]
     Active Substance: VENETOCLAX
     Route: 048
     Dates: start: 20210319, end: 20210319
  41. OXYNORM [Concomitant]
     Active Substance: OXYCODONE HYDROCHLORIDE
     Dosage: INJ 20MG PER 2ML
     Route: 042
     Dates: start: 20210225, end: 20210226
  42. OXYNORM [Concomitant]
     Active Substance: OXYCODONE HYDROCHLORIDE
     Dosage: INJ 20MG PER 2ML
     Route: 042
     Dates: start: 20210228, end: 20210228
  43. OXYNORM [Concomitant]
     Active Substance: OXYCODONE HYDROCHLORIDE
     Dosage: INJ 20MG PER 2ML
     Route: 042
     Dates: start: 20210301, end: 20210301
  44. PETHIDINE HCL [Concomitant]
     Dosage: PETHIDINE HCL HANA
     Route: 042
     Dates: start: 20210228, end: 20210228
  45. IRCODON [Concomitant]
     Active Substance: OXYCODONE HYDROCHLORIDE
     Indication: ABDOMINAL PAIN
     Route: 048
     Dates: start: 20210224, end: 20210224
  46. LASIX [Concomitant]
     Active Substance: FUROSEMIDE
     Route: 042
     Dates: start: 20210322, end: 20210322
  47. LASIX [Concomitant]
     Active Substance: FUROSEMIDE
     Route: 042
     Dates: start: 20210323, end: 20210323
  48. TEICON [Concomitant]
     Dosage: 1VIAL
     Route: 042
     Dates: start: 20210317, end: 20210325
  49. TRIZELE [Concomitant]
     Active Substance: METRONIDAZOLE
     Dosage: 3BOTTLE
     Route: 042
     Dates: start: 20210227, end: 20210306
  50. BENZPHETAMINE HYDROCHLORIDE. [Concomitant]
     Active Substance: BENZPHETAMINE HYDROCHLORIDE
     Indication: PROPHYLAXIS
     Dosage: K 40
     Route: 042
     Dates: start: 20210226, end: 20210226
  51. MACPERAN [Concomitant]
     Active Substance: METOCLOPRAMIDE HYDROCHLORIDE
     Route: 042
     Dates: start: 20210311, end: 20210311
  52. MACPERAN [Concomitant]
     Active Substance: METOCLOPRAMIDE HYDROCHLORIDE
     Route: 042
     Dates: start: 20210313, end: 20210317
  53. PEPTAZOLE [Concomitant]
     Dosage: 1VIAL
     Route: 042
     Dates: start: 20210320, end: 20210320
  54. EFFEXIN [Concomitant]
     Indication: INFECTION PROPHYLAXIS
     Dosage: 1TUBE
     Route: 061
     Dates: start: 20210304, end: 20210306
  55. K?CONTIN [Concomitant]
     Indication: HYPOKALAEMIA
     Route: 048
     Dates: start: 20210306, end: 20210307
  56. KEROMIN [Concomitant]
     Indication: ABDOMINAL PAIN
     Route: 042
     Dates: start: 20210309, end: 20210326
  57. HUMULIN R [Concomitant]
     Active Substance: INSULIN HUMAN
     Indication: HYPERGLYCAEMIA
     Route: 042
     Dates: start: 20210323, end: 20210323
  58. VENCLEXTA [Suspect]
     Active Substance: VENETOCLAX
     Indication: CHRONIC LYMPHOCYTIC LEUKAEMIA
     Route: 048
     Dates: start: 20210224, end: 20210302
  59. DENOGAN [Concomitant]
     Active Substance: PROPACETAMOL HYDROCHLORIDE
     Dosage: 2VIAL
     Route: 042
     Dates: start: 20210301, end: 20210301
  60. DENOGAN [Concomitant]
     Active Substance: PROPACETAMOL HYDROCHLORIDE
     Dosage: 1VIAL
     Route: 042
     Dates: start: 20210308, end: 20210308
  61. CELEBREX [Concomitant]
     Active Substance: CELECOXIB
     Indication: INTERVERTEBRAL DISC PROTRUSION
     Route: 048
     Dates: start: 20181122, end: 20210224
  62. PETHIDINE HCL [Concomitant]
     Dosage: PETHIDINE HCL HANA
     Route: 042
     Dates: start: 20210306, end: 20210307
  63. PETHIDINE HCL [Concomitant]
     Dosage: PETHIDINE HCL HANA
     Route: 042
     Dates: start: 20210308, end: 20210309
  64. MAGO [Concomitant]
     Indication: GASTROINTESTINAL DISORDER PROPHYLAXIS
     Route: 048
     Dates: start: 20190419, end: 20210302
  65. GASTINE [Concomitant]
     Indication: GASTROINTESTINAL DISORDER PROPHYLAXIS
     Route: 048
     Dates: start: 20201030, end: 20210301
  66. LASIX [Concomitant]
     Active Substance: FUROSEMIDE
     Route: 042
     Dates: start: 20210228, end: 20210228
  67. LASIX [Concomitant]
     Active Substance: FUROSEMIDE
     Route: 042
     Dates: start: 20210301, end: 20210301
  68. LASIX [Concomitant]
     Active Substance: FUROSEMIDE
     Route: 042
     Dates: start: 20210309, end: 20210309
  69. LASIX [Concomitant]
     Active Substance: FUROSEMIDE
     Route: 042
     Dates: start: 20210313, end: 20210314
  70. TEICON [Concomitant]
     Indication: LYMPHADENITIS
     Dosage: 2VIAL
     Route: 042
     Dates: start: 20210226, end: 20210226
  71. TRIZELE [Concomitant]
     Active Substance: METRONIDAZOLE
     Indication: LYMPHADENITIS
     Dosage: 4BOTTLE
     Route: 042
     Dates: start: 20210226, end: 20210226
  72. MACPERAN [Concomitant]
     Active Substance: METOCLOPRAMIDE HYDROCHLORIDE
     Route: 042
     Dates: start: 20210318, end: 20210325
  73. CANCIDAS [Concomitant]
     Active Substance: CASPOFUNGIN ACETATE
     Dosage: 1VIAL
     Route: 042
     Dates: start: 20210309, end: 20210309
  74. SEROQUEL [Concomitant]
     Active Substance: QUETIAPINE FUMARATE
     Route: 048
     Dates: start: 20210318, end: 20210319
  75. OXYNORM [Concomitant]
     Active Substance: OXYCODONE HYDROCHLORIDE
     Dosage: INJ 20MG PER 2ML
     Route: 042
     Dates: start: 20210308, end: 20210308
  76. MEROPEN [Concomitant]
     Active Substance: MEROPENEM
     Indication: LYMPHADENITIS
     Dosage: 6VIAL MEROPEN YUHAN
     Route: 042
     Dates: start: 20210223, end: 20210225
  77. MUTERAN [Concomitant]
     Active Substance: ACETYLCYSTEINE
     Indication: RENAL DISORDER PROPHYLAXIS
     Dosage: INJECTION 100MG PER ML 6ML
     Route: 042
     Dates: start: 20210224, end: 20210224
  78. SOLONDO [Concomitant]
     Active Substance: PREDNISOLONE
     Indication: CHEMOTHERAPY SIDE EFFECT PROPHYLAXIS
     Route: 048
     Dates: start: 20210223, end: 20210224
  79. LASIX [Concomitant]
     Active Substance: FUROSEMIDE
     Indication: PROPHYLAXIS
     Route: 042
     Dates: start: 20210226, end: 20210226
  80. TEICON [Concomitant]
     Dosage: 2VIAL
     Route: 042
     Dates: start: 20210307, end: 20210307
  81. NUTRIFLEX PERI [Concomitant]
     Active Substance: AMINO ACIDS\DEXTROSE\ELECTROLYTES NOS
     Indication: NUTRITIONAL SUPPLEMENTATION
     Route: 065
     Dates: start: 20210226, end: 20210309
  82. LIDOCAINE. [Concomitant]
     Active Substance: LIDOCAINE
     Indication: ANAESTHESIA PROCEDURE
     Dosage: 1VIAL
     Route: 058
     Dates: start: 20210302, end: 20210302
  83. WINUF [Concomitant]
     Indication: NUTRITIONAL SUPPLEMENTATION
     Route: 042
     Dates: start: 20210224, end: 20210225
  84. TROPHERINE [Concomitant]
     Indication: RETINAL HAEMORRHAGE
     Dosage: 1BOTTLE
     Route: 047
     Dates: start: 20210318, end: 20210318
  85. HUMULIN R [Concomitant]
     Active Substance: INSULIN HUMAN
     Route: 042
     Dates: start: 20210324, end: 20210324
  86. OXYNORM [Concomitant]
     Active Substance: OXYCODONE HYDROCHLORIDE
     Dosage: INJ 20MG PER 2ML
     Route: 042
     Dates: start: 20210227, end: 20210227
  87. DENOGAN [Concomitant]
     Active Substance: PROPACETAMOL HYDROCHLORIDE
     Indication: LYMPHADENITIS
     Dosage: 1 VIAL
     Route: 042
     Dates: start: 20210226, end: 20210228
  88. DENOGAN [Concomitant]
     Active Substance: PROPACETAMOL HYDROCHLORIDE
     Dosage: 1VIAL
     Route: 042
     Dates: start: 20210311, end: 20210311
  89. PETHIDINE HCL [Concomitant]
     Indication: ABDOMINAL PAIN
     Dosage: PETHIDINE HCL HANA
     Route: 042
     Dates: start: 20210224, end: 20210224
  90. PETHIDINE HCL [Concomitant]
     Dosage: PETHIDINE HCL HANA
     Route: 042
     Dates: start: 20210226, end: 20210226
  91. CYMBALTA [Concomitant]
     Active Substance: DULOXETINE HYDROCHLORIDE
     Indication: DEPRESSION
     Route: 048
     Dates: start: 20210218, end: 202102
  92. LASIX [Concomitant]
     Active Substance: FUROSEMIDE
     Route: 042
     Dates: start: 20210307, end: 20210307
  93. LASIX [Concomitant]
     Active Substance: FUROSEMIDE
     Route: 042
     Dates: start: 20210310, end: 20210310
  94. TEICON [Concomitant]
     Dosage: 1VIAL
     Route: 042
     Dates: start: 20210308, end: 20210308
  95. HEXAMEDIN [Concomitant]
     Indication: PROPHYLAXIS
     Dosage: 1 BOTTLE 0.12 PERCENT  250 ML
     Route: 004
     Dates: start: 20210303, end: 20210306
  96. PEPTAZOLE [Concomitant]
     Dosage: 1VIAL
     Route: 042
     Dates: start: 20210313, end: 20210313
  97. MEROPENEM. [Concomitant]
     Active Substance: MEROPENEM
     Indication: LYMPHADENITIS
     Dosage: 6VIAL
     Route: 042
     Dates: start: 20210307, end: 20210324
  98. CANCIDAS [Concomitant]
     Active Substance: CASPOFUNGIN ACETATE
     Indication: LYMPHADENITIS
     Dosage: 1VIAL
     Route: 042
     Dates: start: 20210308, end: 20210308
  99. SEROQUEL [Concomitant]
     Active Substance: QUETIAPINE FUMARATE
     Route: 048
     Dates: start: 20210317, end: 20210317
  100. CEFTRIAXONE. [Concomitant]
     Active Substance: CEFTRIAXONE
     Indication: LYMPHADENITIS
     Dosage: 1VIAL
     Route: 042
     Dates: start: 20210316, end: 20210319
  101. ORAMEDY [Concomitant]
     Active Substance: TRIAMCINOLONE ACETONIDE
     Indication: PROPHYLAXIS
     Dosage: 1TUBE 1 MG PER GRAM
     Route: 061
     Dates: start: 20210322, end: 20210322
  102. VENCLEXTA [Suspect]
     Active Substance: VENETOCLAX
     Route: 048
     Dates: start: 20210305, end: 20210311
  103. DENOGAN [Concomitant]
     Active Substance: PROPACETAMOL HYDROCHLORIDE
     Dosage: 2VIAL
     Route: 042
     Dates: start: 20210305, end: 20210307
  104. DENOGAN [Concomitant]
     Active Substance: PROPACETAMOL HYDROCHLORIDE
     Dosage: 2VIAL
     Route: 042
     Dates: start: 20210312, end: 20210312
  105. PETHIDINE HCL [Concomitant]
     Dosage: PETHIDINE HCL HANA
     Route: 042
     Dates: start: 20210301, end: 20210301
  106. REMERON [Concomitant]
     Active Substance: MIRTAZAPINE
     Indication: DEPRESSION
     Dosage: TABLET 15 MG
     Route: 048
     Dates: start: 20201208, end: 20210224
  107. MEGACE F [Concomitant]
     Indication: PROPHYLAXIS
     Route: 048
     Dates: start: 20201030, end: 20210224
  108. LASIX [Concomitant]
     Active Substance: FUROSEMIDE
     Route: 042
     Dates: start: 20210304, end: 20210304
  109. LASIX [Concomitant]
     Active Substance: FUROSEMIDE
     Route: 042
     Dates: start: 20210306, end: 20210306
  110. LASIX [Concomitant]
     Active Substance: FUROSEMIDE
     Route: 042
     Dates: start: 20210308, end: 20210308
  111. LASIX [Concomitant]
     Active Substance: FUROSEMIDE
     Route: 042
     Dates: start: 20210311, end: 20210311
  112. LASIX [Concomitant]
     Active Substance: FUROSEMIDE
     Route: 042
     Dates: start: 20210317, end: 20210317
  113. LASIX [Concomitant]
     Active Substance: FUROSEMIDE
     Route: 042
     Dates: start: 20210319, end: 20210319
  114. LASIX [Concomitant]
     Active Substance: FUROSEMIDE
     Route: 042
     Dates: start: 20210325, end: 20210325
  115. TEICON [Concomitant]
     Dosage: 1VIAL
     Route: 042
     Dates: start: 20210227, end: 20210227
  116. MACPERAN [Concomitant]
     Active Substance: METOCLOPRAMIDE HYDROCHLORIDE
     Indication: GASTROINTESTINAL DISORDER PROPHYLAXIS
     Route: 042
     Dates: start: 20210302, end: 20210304
  117. PEPTAZOLE [Concomitant]
     Dosage: 1VIAL
     Route: 042
     Dates: start: 20210322, end: 20210322
  118. ZYPREXA ZYDIS [Concomitant]
     Active Substance: OLANZAPINE
     Indication: DEPRESSION
     Route: 048
     Dates: start: 20210323, end: 20210323
  119. HUMULIN R [Concomitant]
     Active Substance: INSULIN HUMAN
     Route: 042
     Dates: start: 20210325, end: 20210325

REACTIONS (3)
  - Abdominal pain [Recovered/Resolved]
  - Retinal haemorrhage [Recovered/Resolved]
  - Sepsis [Fatal]

NARRATIVE: CASE EVENT DATE: 20210302
